FAERS Safety Report 4512692-7 (Version None)
Quarter: 2004Q4

REPORT INFORMATION
  Report Type: 
  Country: None (occurrence: None)
  Receive Date: 20041012
  Receipt Date: 20040810
  Transmission Date: 20050328
  Serious: No
  Sender: FDA-Public Use
  Company Number: A03200402673

PATIENT
  Age: 57 Year
  Sex: Male

DRUGS (4)
  1. UROXATRAL [Suspect]
     Indication: BENIGN PROSTATIC HYPERPLASIA
     Dosage: 10 MG OD - ORAL
     Route: 048
  2. MULTIVITAMIN [Concomitant]
  3. IRON [Concomitant]
  4. NAPROXEN SODIUM [Concomitant]

REACTIONS (1)
  - RECTAL DISCHARGE [None]
